FAERS Safety Report 19820574 (Version 1)
Quarter: 2021Q3

REPORT INFORMATION
  Report Type: Spontaneous
  Country: US (occurrence: US)
  Receive Date: 20210911
  Receipt Date: 20210911
  Transmission Date: 20211014
  Serious: Yes (Other)
  Sender: FDA-Public Use
  Company Number: None

PATIENT
  Age: 37 Year
  Sex: Female

DRUGS (1)
  1. AMBI FADE NORMAL SKIN [Suspect]
     Active Substance: HYDROQUINONE\OCTINOXATE
     Indication: RASH
     Dosage: ?          QUANTITY:1 CREAM;?
     Route: 062

REACTIONS (4)
  - Skin weeping [None]
  - Job dissatisfaction [None]
  - Blister [None]
  - Application site vesicles [None]

NARRATIVE: CASE EVENT DATE: 20190302
